FAERS Safety Report 9928936 (Version 2)
Quarter: 2014Q1

REPORT INFORMATION
  Report Type: Spontaneous
  Country: JP (occurrence: JP)
  Receive Date: 20140227
  Receipt Date: 20140227
  Transmission Date: 20141002
  Serious: Yes (Death)
  Sender: FDA-Public Use
  Company Number: JP-MALLINCKRODT-T201401079

PATIENT
  Age: 62 Year
  Sex: Male
  Weight: 53.1 kg

DRUGS (13)
  1. METHADONE [Suspect]
     Indication: CANCER PAIN
     Dosage: 20 MG (60 MG DAILY DOSE)
     Route: 048
     Dates: start: 20130904, end: 20130909
  2. METHADONE [Suspect]
     Dosage: 10 MG (30 MG DAILY DOSE)
     Route: 048
     Dates: start: 20130821, end: 20130827
  3. METHADONE [Suspect]
     Dosage: 15 MG (45 MG DAILY DOSE)
     Route: 048
     Dates: start: 20130828, end: 20130903
  4. METHADONE [Suspect]
     Dosage: 15 MG (45 MG DAILY DOSE)
     Route: 048
     Dates: start: 20130910, end: 20131113
  5. OXINORM [Concomitant]
     Indication: PRODUCT USED FOR UNKNOWN INDICATION
     Dosage: 10 MG, PRN
     Route: 048
     Dates: start: 20130820
  6. ANAPEINE [Concomitant]
     Indication: PRODUCT USED FOR UNKNOWN INDICATION
     Dosage: 72 ML, UNK
     Route: 008
     Dates: start: 20130808, end: 20130828
  7. TAKEPRON [Concomitant]
     Indication: PRODUCT USED FOR UNKNOWN INDICATION
     Dosage: 15 MG, UNK
     Route: 048
     Dates: start: 20111201
  8. MAGMITT [Concomitant]
     Indication: PRODUCT USED FOR UNKNOWN INDICATION
     Dosage: 1500 MG, UNK
     Route: 048
     Dates: start: 20111201
  9. METHYCOBAL [Concomitant]
     Indication: PRODUCT USED FOR UNKNOWN INDICATION
     Dosage: 1500 ?G, UNK
     Route: 048
     Dates: start: 20120216
  10. EVIPROSTAT N [Concomitant]
     Indication: PRODUCT USED FOR UNKNOWN INDICATION
     Dosage: 2 DF, UNK
     Route: 048
     Dates: start: 20130624
  11. URIEF [Concomitant]
     Indication: PRODUCT USED FOR UNKNOWN INDICATION
     Dosage: 8 MG, UNK
     Route: 048
     Dates: start: 20130624
  12. ESTRACYT [Concomitant]
     Indication: PRODUCT USED FOR UNKNOWN INDICATION
     Dosage: 313.4 MG, UNK
     Route: 048
     Dates: start: 20120125
  13. PREDONINE [Concomitant]
     Indication: PRODUCT USED FOR UNKNOWN INDICATION
     Dosage: 10 MG, UNK
     Route: 048
     Dates: start: 20120202

REACTIONS (2)
  - Prostate cancer [Fatal]
  - Somnolence [Recovering/Resolving]
